FAERS Safety Report 5346625-0 (Version None)
Quarter: 2007Q2

REPORT INFORMATION
  Report Type: 
  Country: None (occurrence: None)
  Receive Date: 20070604
  Receipt Date: 20070522
  Transmission Date: 20071010
  Serious: Yes (Death, Hospitalization)
  Sender: FDA-Public Use
  Company Number: 167-20785-04090208

PATIENT
  Age: 60 Year
  Sex: Female

DRUGS (4)
  1. THALIDOMIDE [Suspect]
     Indication: NON-SMALL CELL LUNG CANCER
     Dosage: 2 CAPS, DAILY, ORAL
     Route: 048
     Dates: start: 20040604
  2. GEMCITABINE [Suspect]
     Indication: NON-SMALL CELL LUNG CANCER
  3. CARBOPLATIN [Suspect]
     Indication: NON-SMALL CELL LUNG CANCER
  4. ENOXAPARIN SODIUM [Concomitant]

REACTIONS (6)
  - BRONCHIAL CARCINOMA [None]
  - DEEP VEIN THROMBOSIS [None]
  - METASTATIC NEOPLASM [None]
  - PERICARDIAL EFFUSION [None]
  - PLEURAL EFFUSION [None]
  - RENAL FAILURE ACUTE [None]
